FAERS Safety Report 8953367 (Version 1)
Quarter: 2012Q4

REPORT INFORMATION
  Report Type: 
  Country: US (occurrence: US)
  Receive Date: 20121206
  Receipt Date: 20121206
  Transmission Date: 20130627
  Serious: No
  Sender: FDA-Public Use
  Company Number: US-CELGENE-163-21880-12111099

PATIENT
  Age: 65 Year
  Sex: Male
  Weight: 94.89 kg

DRUGS (7)
  1. REVLIMID [Suspect]
     Indication: MULTIPLE MYELOMA
     Dosage: 10 Milligram
     Route: 048
     Dates: start: 20120801
  2. MOZOBIL [Concomitant]
     Indication: DRUG USE FOR UNKNOWN INDICATION
     Route: 065
  3. NEUPOGEN [Concomitant]
     Indication: NEUROPATHY
     Dosage: 200 Milligram
     Route: 048
  4. LEVAQUIN [Concomitant]
     Indication: DRUG USE FOR UNKNOWN INDICATION
     Dosage: 500 Milligram
     Route: 048
  5. VITAMIN B6 [Concomitant]
     Indication: NEUROPATHY
     Dosage: 200 Milligram
     Route: 048
     Dates: start: 20120913
  6. BARACLUDE [Concomitant]
     Indication: ANTIVIRAL PROPHYLAXIS
     Dosage: .5 Milligram
     Route: 048
     Dates: start: 20120717, end: 20120720
  7. POTASSIUM [Concomitant]
     Indication: HYPOKALEMIA
     Dosage: 20 Milliequivalents
     Route: 048
     Dates: start: 20120717

REACTIONS (1)
  - Diarrhoea [Recovered/Resolved]
